FAERS Safety Report 9010189 (Version 2)
Quarter: 2013Q2

REPORT INFORMATION
  Report Type: Spontaneous
  Country: US (occurrence: US)
  Receive Date: 20130110
  Receipt Date: 20130509
  Transmission Date: 20140414
  Serious: Yes (Other)
  Sender: FDA-Public Use
  Company Number: US-BAYER-2013-003281

PATIENT
  Age: 49 Year
  Sex: Female

DRUGS (8)
  1. YAZ [Suspect]
     Indication: ACNE
     Dosage: UNK
     Dates: start: 20091202
  2. VOSOL HC [Concomitant]
     Dosage: 2%-1% SOLUTION; 3 DROP QID
     Dates: start: 20090917
  3. AUGMENTIN [Concomitant]
     Dosage: 875 MG-125 MG Q12H
     Route: 048
     Dates: start: 20090917, end: 20091110
  4. LEVAQUIN [Concomitant]
     Dosage: UNK
     Dates: start: 20091110
  5. IBUPROFEN [Concomitant]
     Dosage: UNK
     Dates: start: 20091110
  6. HYDROCORTISONE [Concomitant]
     Dosage: UNK
     Dates: start: 20091117
  7. VICODIN [Concomitant]
     Dosage: 500 MG-5 MG, 1 Q4H
     Route: 048
     Dates: start: 20091202
  8. MULTIVITAMIN [Concomitant]
     Dosage: 1 DAILY
     Route: 048
     Dates: start: 20091223

REACTIONS (6)
  - Deep vein thrombosis [None]
  - Injury [None]
  - Pain [None]
  - Pain [None]
  - Pelvic venous thrombosis [None]
  - Deep vein thrombosis [None]
